FAERS Safety Report 18589679 (Version 3)
Quarter: 2021Q1

REPORT INFORMATION
  Report Type: Spontaneous
  Country: JP (occurrence: JP)
  Receive Date: 20201208
  Receipt Date: 20210111
  Transmission Date: 20210419
  Serious: Yes (Death, Hospitalization)
  Sender: FDA-Public Use
  Company Number: NVSJ2020JP013188

PATIENT
  Sex: Male

DRUGS (2)
  1. ENTRESTO [Suspect]
     Active Substance: SACUBITRIL\VALSARTAN
     Indication: DYSPNOEA
  2. ENTRESTO [Suspect]
     Active Substance: SACUBITRIL\VALSARTAN
     Indication: CARDIAC FAILURE
     Dosage: 50 MG, BID
     Route: 048

REACTIONS (2)
  - Aortic dissection [Recovered/Resolved]
  - Staphylococcal sepsis [Fatal]

NARRATIVE: CASE EVENT DATE: 202011
